FAERS Safety Report 7585095-9 (Version None)
Quarter: 2011Q3

REPORT INFORMATION
  Report Type: 
  Country: None (occurrence: None)
  Receive Date: 20110701
  Receipt Date: 20110617
  Transmission Date: 20111222
  Serious: Yes (Other)
  Sender: FDA-Public Use
  Company Number: ES-RANBAXY-2011RR-45341

PATIENT
  Age: 51 Year
  Sex: Female

DRUGS (3)
  1. LEVOFLOXACIN [Suspect]
     Indication: PLEURAL EFFUSION
     Dosage: 500 MG, BID
     Route: 048
  2. CEFTRIAXONE [Suspect]
     Indication: PLEURAL EFFUSION
     Dosage: 2 G, QD
     Route: 042
  3. AMOXICILLIN AND CLAVULANATE POTASSIUM [Suspect]
     Indication: PLEURAL EFFUSION
     Dosage: 1 G, TID
     Route: 042

REACTIONS (5)
  - HEPATITIS CHOLESTATIC [None]
  - INCORRECT DRUG ADMINISTRATION DURATION [None]
  - GAMMA-GLUTAMYLTRANSFERASE INCREASED [None]
  - TRANSAMINASES INCREASED [None]
  - BLOOD ALKALINE PHOSPHATASE INCREASED [None]
